FAERS Safety Report 8223977-5 (Version None)
Quarter: 2012Q1

REPORT INFORMATION
  Report Type: 
  Country: None (occurrence: None)
  Receive Date: 20120321
  Receipt Date: 20120315
  Transmission Date: 20120608
  Serious: Yes (Hospitalization, Other)
  Sender: FDA-Public Use
  Company Number: PHHY2012BR023413

PATIENT
  Sex: Male

DRUGS (3)
  1. FORMOTEROL FUMARATE [Suspect]
     Indication: EMPHYSEMA
     Dosage: 1 INHALATION A DAY OR 2 INHALATIONS PRN
  2. ONBREZ [Suspect]
     Indication: EMPHYSEMA
     Dosage: 150 UG, UNK
  3. SPIRIVA [Suspect]
     Indication: EMPHYSEMA
     Dosage: 2.5 MG, ONE TIME A DAY

REACTIONS (2)
  - NOSOCOMIAL INFECTION [None]
  - EMPHYSEMA [None]
